FAERS Safety Report 10200207 (Version 1)
Quarter: 2014Q2

REPORT INFORMATION
  Report Type: Spontaneous
  Country: US (occurrence: US)
  Receive Date: 20140527
  Receipt Date: 20140527
  Transmission Date: 20141212
  Serious: No
  Sender: FDA-Public Use
  Company Number: US-BAXTER-2014BAX025676

PATIENT
  Sex: Female

DRUGS (3)
  1. GAMMAGARD LIQUID [Suspect]
     Indication: PRODUCT USED FOR UNKNOWN INDICATION
     Route: 042
     Dates: start: 201401
  2. GAMMAGARD LIQUID [Suspect]
     Route: 042
     Dates: start: 201401
  3. RITUXAN [Concomitant]
     Indication: LYMPHOMA
     Dates: start: 2012

REACTIONS (1)
  - Diarrhoea [Unknown]
